FAERS Safety Report 8444202-6 (Version None)
Quarter: 2012Q2

REPORT INFORMATION
  Report Type: 
  Country: None (occurrence: None)
  Receive Date: 20120323
  Receipt Date: 20110926
  Transmission Date: 20120825
  Serious: Yes (Other)
  Sender: FDA-Public Use
  Company Number: 163-21880-11052998

PATIENT
  Age: 69 Year
  Sex: Male

DRUGS (5)
  1. ASPIRIN [Concomitant]
  2. PREDNISONE TAB [Concomitant]
  3. REVLIMID [Suspect]
     Indication: MYELOFIBROSIS
     Dosage: 25 MG, DAILY X 21 DAYS REPEAT Q28B, PO' 10 MG, DAILY X 21 DAYS REPEAT Q28D, PO; 10 MG, 1 IN 1 D, PO
     Route: 048
     Dates: start: 20110524
  4. REVLIMID [Suspect]
     Indication: MYELOFIBROSIS
     Dosage: 25 MG, DAILY X 21 DAYS REPEAT Q28B, PO' 10 MG, DAILY X 21 DAYS REPEAT Q28D, PO; 10 MG, 1 IN 1 D, PO
     Route: 048
     Dates: start: 20110228
  5. REVLIMID [Suspect]
     Indication: MYELOFIBROSIS
     Dosage: 25 MG, DAILY X 21 DAYS REPEAT Q28B, PO' 10 MG, DAILY X 21 DAYS REPEAT Q28D, PO; 10 MG, 1 IN 1 D, PO
     Route: 048
     Dates: start: 20110301

REACTIONS (3)
  - PANCYTOPENIA [None]
  - PLATELET COUNT DECREASED [None]
  - WHITE BLOOD CELL COUNT DECREASED [None]
